FAERS Safety Report 21650515 (Version 5)
Quarter: 2024Q3

REPORT INFORMATION
  Report Type: Report from Study
  Country: AU (occurrence: AU)
  Receive Date: 20221128
  Receipt Date: 20240930
  Transmission Date: 20241017
  Serious: Yes (Disabling, Other)
  Sender: IPSEN
  Company Number: AU-KOREA IPSEN Pharma-2022-32073

PATIENT
  Age: 67 Year
  Sex: Female
  Weight: 49 kg

DRUGS (15)
  1. LANREOTIDE ACETATE [Suspect]
     Active Substance: LANREOTIDE ACETATE
     Indication: Neuroendocrine tumour
     Dosage: DEEP SC
     Route: 058
     Dates: start: 20170621
  2. LANREOTIDE ACETATE [Suspect]
     Active Substance: LANREOTIDE ACETATE
     Indication: Acromegaly
  3. LANREOTIDE ACETATE [Suspect]
     Active Substance: LANREOTIDE ACETATE
     Indication: Carcinoid syndrome
  4. PREGABALIN [Concomitant]
     Active Substance: PREGABALIN
     Indication: Neuralgia
     Dosage: CAPSULES 25 MG 2 TIMES
  5. PANTOPRAZOLE [Concomitant]
     Active Substance: PANTOPRAZOLE
     Indication: Gastrooesophageal reflux disease
     Dosage: TABLETS 40 MG 2 TIMES
  6. MORPHINE [Concomitant]
     Active Substance: MORPHINE
     Indication: Breakthrough pain
     Dosage: ORAL/LIQUID 1 MG/ML TO RELIEVE
     Route: 048
  7. ACETAMINOPHEN [Concomitant]
     Active Substance: ACETAMINOPHEN
     Indication: Pain
     Dosage: TABLET 500 MG WHEN NEEDED
  8. ACETAMINOPHEN [Concomitant]
     Active Substance: ACETAMINOPHEN
     Indication: Pyrexia
  9. LACTULOSE [Concomitant]
     Active Substance: LACTULOSE
     Indication: Constipation
     Dosage: 20 ML ORALLY THREE TIMES A DAY WHEN NEEDED
     Route: 048
  10. MAGNESIUM HYDROXIDE;SODIUM BICARBONATE;TARTARIC ACID [Concomitant]
     Indication: Constipation
     Dosage: ONE TEASPOON TWICE A DAY WHEN REQUIRED
  11. POLOXAMER [Concomitant]
     Active Substance: POLOXAMER
     Indication: Constipation
     Dosage: 03 ML TWICE A DAY
     Route: 048
  12. DEXTRIN\WHEAT [Concomitant]
     Active Substance: ICODEXTRIN\WHEAT
     Dosage: TWICE A DAY
  13. FLUTICASONE [Concomitant]
     Active Substance: FLUTICASONE
     Indication: Asthma
     Dosage: 250 MCG TWICE A DAY
  14. ALBUTEROL [Concomitant]
     Active Substance: ALBUTEROL
     Dosage: 100 MCG FOR EASIER BREATHING WHEN REQUIRED
  15. OCTREOTIDE [Concomitant]
     Active Substance: OCTREOTIDE\OCTREOTIDE ACETATE
     Indication: Carcinoid syndrome
     Dosage: 100MCG/1 ML; SUBCUTANEOUSLY THREE TIMES A DAY
     Route: 058

REACTIONS (11)
  - Flushing [Unknown]
  - Blood urine [Not Recovered/Not Resolved]
  - Exercise tolerance decreased [Unknown]
  - General physical health deterioration [Not Recovered/Not Resolved]
  - Nausea [Not Recovered/Not Resolved]
  - Vomiting [Not Recovered/Not Resolved]
  - Abdominal pain [Unknown]
  - Abdominal pain [Unknown]
  - Constipation [Unknown]
  - Abdominal distension [Unknown]
  - Off label use [Unknown]

NARRATIVE: CASE EVENT DATE: 20221123
